FAERS Safety Report 19576122 (Version 1)
Quarter: 2021Q3

REPORT INFORMATION
  Report Type: Spontaneous
  Country: US (occurrence: US)
  Receive Date: 20210716
  Receipt Date: 20210716
  Transmission Date: 20211014
  Serious: Yes (Other)
  Sender: FDA-Public Use
  Company Number: None

PATIENT
  Age: 58 Year
  Sex: Female
  Weight: 98.2 kg

DRUGS (2)
  1. CASIRIVIMAB 600MG [Suspect]
     Active Substance: CASIRIVIMAB
     Indication: COVID-19
     Dosage: 600 MG OVER 20 MINUTES
     Route: 042
     Dates: start: 20210706, end: 20210706
  2. IMDEVIMAB 600MG / 50ML NS [Suspect]
     Active Substance: IMDEVIMAB
     Indication: COVID-19
     Route: 042
     Dates: start: 20210706, end: 20210706

REACTIONS (4)
  - Vomiting [None]
  - Blood pressure decreased [None]
  - Anxiety [None]
  - Pruritus [None]

NARRATIVE: CASE EVENT DATE: 20210706
